FAERS Safety Report 11010667 (Version 2)
Quarter: 2015Q3

REPORT INFORMATION
  Report Type: Report from Study
  Country: US (occurrence: US)
  Receive Date: 20150410
  Receipt Date: 20150918
  Transmission Date: 20151125
  Serious: Yes (Hospitalization, Other)
  Sender: FDA-Public Use
  Company Number: US-AMGEN-USASP2015033978

PATIENT
  Age: 62 Year
  Sex: Male

DRUGS (1)
  1. ENBREL [Suspect]
     Active Substance: ETANERCEPT
     Indication: RHEUMATOID ARTHRITIS
     Dosage: 50 MG, QWK
     Route: 065
     Dates: start: 200301

REACTIONS (12)
  - Hand fracture [Unknown]
  - Emphysema [Unknown]
  - Oxygen saturation decreased [Unknown]
  - Chronic obstructive pulmonary disease [Unknown]
  - Disability [Unknown]
  - Pneumonia [Unknown]
  - Dyspnoea [Not Recovered/Not Resolved]
  - Delirium [Unknown]
  - Hyperventilation [Not Recovered/Not Resolved]
  - Asthma [Unknown]
  - Fall [Unknown]
  - Rib fracture [Unknown]

NARRATIVE: CASE EVENT DATE: 201503
